FAERS Safety Report 23076506 (Version 3)
Quarter: 2024Q2

REPORT INFORMATION
  Report Type: Report from Study
  Country: US (occurrence: US)
  Receive Date: 20231017
  Receipt Date: 20240425
  Transmission Date: 20240716
  Serious: Yes (Hospitalization)
  Sender: FDA-Public Use
  Company Number: US-TAIHOP-2023-008683

PATIENT
  Sex: Male

DRUGS (13)
  1. LONSURF [Suspect]
     Active Substance: TIPIRACIL HYDROCHLORIDE\TRIFLURIDINE
     Indication: Colon cancer
     Dosage: CYCLE 1
     Route: 048
     Dates: start: 20231009
  2. ELIQUIS [Concomitant]
     Active Substance: APIXABAN
     Indication: Product used for unknown indication
  3. LIDO/PRILOCN [Concomitant]
     Indication: Product used for unknown indication
     Dosage: 2.5-2.5% CRE
  4. KETOCONAZOLE [Concomitant]
     Active Substance: KETOCONAZOLE
     Indication: Product used for unknown indication
  5. LOPERAMIDE [Concomitant]
     Active Substance: LOPERAMIDE
     Indication: Product used for unknown indication
  6. LYRICA [Concomitant]
     Active Substance: PREGABALIN
     Indication: Product used for unknown indication
  7. MAGNESIUM OX [Concomitant]
     Indication: Product used for unknown indication
  8. PSYLLIUM POW HUSK [Concomitant]
     Indication: Product used for unknown indication
  9. TAMSULOSIN [Concomitant]
     Active Substance: TAMSULOSIN
     Indication: Product used for unknown indication
  10. TYLENOL [Concomitant]
     Active Substance: ACETAMINOPHEN
     Indication: Product used for unknown indication
  11. VITAMIN B12 [Concomitant]
     Active Substance: CYANOCOBALAMIN
     Indication: Product used for unknown indication
  12. VITAMIN D [Concomitant]
     Active Substance: VITAMIN D NOS
     Indication: Product used for unknown indication
  13. PROCHLORPER [Concomitant]
     Indication: Product used for unknown indication

REACTIONS (8)
  - Asthenia [Unknown]
  - Pneumonia [Unknown]
  - Hypomagnesaemia [Unknown]
  - Disease progression [Unknown]
  - Neuropathy peripheral [Unknown]
  - Vitamin B12 deficiency [Unknown]
  - Anxiety [Unknown]
  - Pancytopenia [Unknown]
